FAERS Safety Report 13245974 (Version 1)
Quarter: 2017Q1

REPORT INFORMATION
  Report Type: Spontaneous
  Country: FR (occurrence: FR)
  Receive Date: 20170217
  Receipt Date: 20170217
  Transmission Date: 20170428
  Serious: Yes (Life-Threatening, Hospitalization, Other)
  Sender: FDA-Public Use
  Company Number: FR-BRISTOL-MYERS SQUIBB COMPANY-BMS-2017-010491

PATIENT
  Age: 68 Year
  Sex: Male

DRUGS (4)
  1. ETOPOPHOS [Suspect]
     Active Substance: ETOPOSIDE PHOSPHATE
     Indication: B-CELL LYMPHOMA
     Dosage: 375 MG, QD
     Route: 042
  2. BICNU [Suspect]
     Active Substance: CARMUSTINE
     Indication: B-CELL LYMPHOMA
     Dosage: 560 MG, UNK
     Route: 065
     Dates: start: 20160210
  3. CYTARABINE ACCORD [Suspect]
     Active Substance: CYTARABINE
     Indication: B-CELL LYMPHOMA
     Dosage: 750 MG, QD
     Route: 065
     Dates: start: 20160211, end: 20160214
  4. ALKERAN [Suspect]
     Active Substance: MELPHALAN
     Indication: B-CELL LYMPHOMA
     Dosage: 260 MG, QD
     Route: 065
     Dates: start: 20160215

REACTIONS (7)
  - Platelet transfusion [Unknown]
  - Rhinovirus infection [Unknown]
  - Interstitial lung disease [Recovered/Resolved]
  - Packed red blood cell transfusion [Unknown]
  - Respiratory distress [Recovered/Resolved]
  - Bone marrow failure [Recovered/Resolved]
  - Mechanical ventilation [Unknown]

NARRATIVE: CASE EVENT DATE: 20160218
